FAERS Safety Report 5270502-7 (Version None)
Quarter: 2007Q1

REPORT INFORMATION
  Report Type: 
  Country: None (occurrence: None)
  Receive Date: 20070315
  Receipt Date: 20070301
  Transmission Date: 20070707
  Serious: Yes (Other)
  Sender: FDA-Public Use
  Company Number: 2007US-06126

PATIENT
  Age: 26 Year
  Sex: Female

DRUGS (2)
  1. ISOTRETINOIN [Suspect]
     Dosage: SEE IMAGE
     Route: 048
     Dates: start: 20061101, end: 20070220
  2. ISOTRETINOIN [Suspect]
     Dosage: SEE IMAGE
     Route: 048
     Dates: start: 20061101, end: 20070220

REACTIONS (2)
  - PREGNANCY [None]
  - PREGNANCY WITH INJECTABLE CONTRACEPTIVE [None]
